FAERS Safety Report 5153276-X (Version None)
Quarter: 2006Q4

REPORT INFORMATION
  Report Type: 
  Country: None (occurrence: None)
  Receive Date: 20061117
  Receipt Date: 20061107
  Transmission Date: 20070319
  Serious: Yes (Hospitalization)
  Sender: FDA-Public Use
  Company Number: US-ROCHE-470713

PATIENT
  Age: 57 Year
  Sex: Female
  Weight: 73.5 kg

DRUGS (2)
  1. CAPECITABINE [Suspect]
     Indication: BREAST CANCER METASTATIC
     Route: 065
     Dates: start: 20061012, end: 20061102
  2. BLINDED BEVACIZUMAB [Suspect]
     Route: 042
     Dates: start: 20061012

REACTIONS (1)
  - DIVERTICULITIS [None]
